FAERS Safety Report 14804311 (Version 1)
Quarter: 2018Q2

REPORT INFORMATION
  Report Type: Spontaneous
  Country: US (occurrence: US)
  Receive Date: 20180416
  Receipt Date: 20180416
  Transmission Date: 20180711
  Serious: Yes (Disabling)
  Sender: FDA-Public Use
  Company Number: None

PATIENT
  Age: 48 Year
  Sex: Female
  Weight: 106.2 kg

DRUGS (6)
  1. METFORMIN [Concomitant]
     Active Substance: METFORMIN HYDROCHLORIDE
  2. LANTUS [Concomitant]
     Active Substance: INSULIN GLARGINE
  3. 81MG ASPIRIN [Concomitant]
  4. IBUPROFEN. [Concomitant]
     Active Substance: IBUPROFEN
  5. XALATAN [Concomitant]
     Active Substance: LATANOPROST
  6. LIRAGLUTIDE [Suspect]
     Active Substance: LIRAGLUTIDE
     Indication: DIABETES MELLITUS
     Dosage: ?          QUANTITY:1 INJECTION(S);?
     Route: 058
     Dates: start: 20180301, end: 20180416

REACTIONS (1)
  - Muscle spasms [None]

NARRATIVE: CASE EVENT DATE: 20180413
